FAERS Safety Report 7726969-5 (Version None)
Quarter: 2011Q3

REPORT INFORMATION
  Report Type: 
  Country: None (occurrence: None)
  Receive Date: 20110902
  Receipt Date: 20110829
  Transmission Date: 20111222
  Serious: Yes (Other)
  Sender: FDA-Public Use
  Company Number: US-PFIZER INC-2011200720

PATIENT

DRUGS (1)
  1. VANCOMYCIN HCL [Suspect]
     Dosage: UNK
     Route: 047

REACTIONS (2)
  - TOXIC ANTERIOR SEGMENT SYNDROME [None]
  - INCORRECT ROUTE OF DRUG ADMINISTRATION [None]
